FAERS Safety Report 6018966-5 (Version None)
Quarter: 2008Q4

REPORT INFORMATION
  Report Type: 
  Country: None (occurrence: None)
  Receive Date: 20081221
  Receipt Date: 20081221
  Transmission Date: 20090506
  Serious: Yes (Other)
  Sender: FDA-Public Use
  Company Number: None

PATIENT
  Age: 25 Year
  Sex: Female
  Weight: 61.2356 kg

DRUGS (1)
  1. BACTRIM DS [Suspect]
     Indication: STAPHYLOCOCCAL INFECTION
     Dosage: 1 TABLET BID PO
     Route: 048
     Dates: start: 20081208, end: 20081218

REACTIONS (2)
  - GENERALISED ERYTHEMA [None]
  - RASH GENERALISED [None]
